FAERS Safety Report 12691270 (Version 1)
Quarter: 2016Q3

REPORT INFORMATION
  Report Type: Spontaneous
  Country: IT (occurrence: IT)
  Receive Date: 20160826
  Receipt Date: 20160826
  Transmission Date: 20161109
  Serious: Yes (Other)
  Sender: FDA-Public Use
  Company Number: IT-MYLANLABS-2016M1035555

PATIENT

DRUGS (4)
  1. QUETIAPINE. [Suspect]
     Active Substance: QUETIAPINE
     Indication: CONDUCT DISORDER
     Dosage: 2 DF, QD
     Route: 048
     Dates: start: 20160101
  2. TALOFEN [Suspect]
     Active Substance: PROMAZINE HYDROCHLORIDE
     Indication: CONDUCT DISORDER
     Dosage: 7 GTT, QD
     Route: 048
     Dates: start: 20160101
  3. TRIATEC                            /00885601/ [Concomitant]
     Active Substance: RAMIPRIL
     Indication: PRODUCT USED FOR UNKNOWN INDICATION
     Route: 048
  4. TRITTICO [Suspect]
     Active Substance: TRAZODONE HYDROCHLORIDE
     Indication: CONDUCT DISORDER
     Dosage: 36 GTT, QD
     Route: 048
     Dates: start: 20160101

REACTIONS (5)
  - Sopor [Unknown]
  - Dysstasia [Unknown]
  - Agitation [Unknown]
  - Anger [Unknown]
  - Language disorder [Unknown]

NARRATIVE: CASE EVENT DATE: 20160707
